FAERS Safety Report 14432457 (Version 2)
Quarter: 2018Q1

REPORT INFORMATION
  Report Type: Spontaneous
  Country: US (occurrence: US)
  Receive Date: 20180124
  Receipt Date: 20180125
  Transmission Date: 20180509
  Serious: Yes (Hospitalization)
  Sender: FDA-Public Use
  Company Number: US-SUPERNUS PHARMACEUTICALS, INC.-2017SUP00315

PATIENT
  Sex: Female
  Weight: 66.67 kg

DRUGS (4)
  1. TROKENDI XR [Suspect]
     Active Substance: TOPIRAMATE
     Indication: NERVE INJURY
     Dosage: 25 MG, 1X/DAY
     Route: 048
     Dates: start: 20171025, end: 20171109
  2. OXYCODONE [Concomitant]
     Active Substance: OXYCODONE
     Dosage: 40 MG, 4X/DAY
  3. UNSPECIFIED HEART MEDICATION [Concomitant]
     Active Substance: UNSPECIFIED INGREDIENT
  4. UNSPECIFIED BLOOD PRESSURE MEDICATION [Concomitant]
     Active Substance: UNSPECIFIED INGREDIENT

REACTIONS (7)
  - Decreased appetite [Recovered/Resolved]
  - Intercostal neuralgia [Unknown]
  - Off label use [Recovered/Resolved]
  - Musculoskeletal chest pain [Unknown]
  - Dizziness [Recovered/Resolved]
  - Somnolence [Recovered/Resolved]
  - Abdominal pain upper [Recovered/Resolved]

NARRATIVE: CASE EVENT DATE: 2017
